FAERS Safety Report 6633845-8 (Version None)
Quarter: 2010Q1

REPORT INFORMATION
  Report Type: 
  Country: None (occurrence: None)
  Receive Date: 20100309
  Receipt Date: 20100223
  Transmission Date: 20100710
  Serious: Yes (Other)
  Sender: FDA-Public Use
  Company Number: 230267K09GBR

PATIENT
  Age: 43 Year
  Sex: Female

DRUGS (3)
  1. REBIF [Suspect]
     Dosage: SEE IMAGE
     Route: 058
     Dates: start: 20090724, end: 20090101
  2. REBIF [Suspect]
     Dosage: SEE IMAGE
     Route: 058
     Dates: end: 20090724
  3. REBIF [Suspect]
     Dosage: SEE IMAGE
     Route: 058
     Dates: start: 20091101

REACTIONS (5)
  - ABASIA [None]
  - BODY TEMPERATURE INCREASED [None]
  - DIZZINESS [None]
  - FLUSHING [None]
  - HEADACHE [None]
